FAERS Safety Report 7396300-6 (Version None)
Quarter: 2011Q1

REPORT INFORMATION
  Report Type: 
  Country: None (occurrence: None)
  Receive Date: 20110331
  Receipt Date: 20110331
  Transmission Date: 20110831
  Serious: Yes (Disabling, Other)
  Sender: FDA-Public Use
  Company Number: None

PATIENT
  Age: 28 Year
  Sex: Female
  Weight: 67.1324 kg

DRUGS (10)
  1. LORAZEPAM [Concomitant]
  2. PRAZOSIN HCL [Concomitant]
  3. LAMOTRIGINE [Suspect]
     Indication: BIPOLAR II DISORDER
     Dosage: 175MG BID 047
     Dates: start: 20091020, end: 20091213
  4. ADDERALL 10 [Concomitant]
  5. DESOGEN [Concomitant]
  6. ZYRTEC [Concomitant]
  7. FLONASE [Concomitant]
  8. GEODON [Suspect]
     Indication: MAJOR DEPRESSION
     Dosage: 047
     Dates: start: 20091218, end: 20091223
  9. CYMBALTA [Concomitant]
  10. ASTELIN [Concomitant]

REACTIONS (9)
  - MIDDLE INSOMNIA [None]
  - ALTERED STATE OF CONSCIOUSNESS [None]
  - SOCIAL AVOIDANT BEHAVIOUR [None]
  - FEAR OF DISEASE [None]
  - EDUCATIONAL PROBLEM [None]
  - NERVOUS SYSTEM DISORDER [None]
  - LOSS OF EMPLOYMENT [None]
  - AMNESIA [None]
  - BEDRIDDEN [None]
